FAERS Safety Report 8302773-4 (Version None)
Quarter: 2012Q2

REPORT INFORMATION
  Report Type: 
  Country: None (occurrence: None)
  Receive Date: 20120420
  Receipt Date: 20111013
  Transmission Date: 20120825
  Serious: No
  Sender: FDA-Public Use
  Company Number: US-PFIZER INC-K201101215

PATIENT
  Sex: Male
  Weight: 77.098 kg

DRUGS (1)
  1. AVINZA [Suspect]
     Indication: BACK PAIN
     Dosage: 60 MG, 1X/DAY
     Route: 048
     Dates: start: 20100501

REACTIONS (2)
  - DRUG DIVERSION [None]
  - DRUG INEFFECTIVE [None]
